FAERS Safety Report 10620274 (Version 1)
Quarter: 2014Q4

REPORT INFORMATION
  Report Type: Spontaneous
  Country: FR (occurrence: None)
  Receive Date: 20141128
  Receipt Date: 20141128
  Transmission Date: 20150529
  Serious: Yes (Hospitalization)
  Sender: FDA-Public Use
  Company Number: IMP_08234_2014

PATIENT
  Age: 49 Year
  Sex: Female

DRUGS (3)
  1. TERBUTALINE (TERBUTALINE) NEBULISER SOLUTION, 5MG/2ML [Suspect]
     Active Substance: TERBUTALINE
     Indication: ASTHMA
     Dosage: 5 MG/2ML IN 2 HOURS, OVER 2 HOURS, TWO SERIES, AEROSAL, RESPIRATORY (INHALATION)?
     Route: 055
  2. IPRATROPIUM BROMIDE. [Suspect]
     Active Substance: IPRATROPIUM BROMIDE
     Indication: ASTHMA
     Dosage: 0.5 MG/2ML IN 2 HOURS, OVER 2 HOURS, TWO SERIES, AEROSAL, RESPIRATORY (INHALATION)?
     Route: 055
  3. SALBUTAMOL (SALBUTAMOL) [Suspect]
     Active Substance: ALBUTEROL
     Indication: ASTHMA
     Dosage: DF NEBULIZED RESPIRATORY (INHALATION)?
     Route: 055

REACTIONS (4)
  - Asthma [None]
  - Lactic acidosis [None]
  - Blood pressure increased [None]
  - Respiratory distress [None]
